FAERS Safety Report 6241611-0 (Version None)
Quarter: 2009Q2

REPORT INFORMATION
  Report Type: 
  Country: None (occurrence: None)
  Receive Date: 20090623
  Receipt Date: 20030317
  Transmission Date: 20091009
  Serious: Yes (Hospitalization)
  Sender: FDA-Public Use
  Company Number: DE-ROCHE-610507

PATIENT
  Sex: Male

DRUGS (61)
  1. DACLIZUMAB [Suspect]
     Route: 042
     Dates: start: 20021128, end: 20021128
  2. DACLIZUMAB [Suspect]
     Route: 042
     Dates: start: 20021212
  3. MYCOPHENOLATE MOFETIL [Suspect]
     Route: 048
     Dates: start: 20021128, end: 20021128
  4. MYCOPHENOLATE MOFETIL [Suspect]
     Route: 048
     Dates: start: 20021129
  5. MYCOPHENOLATE MOFETIL [Suspect]
     Route: 048
     Dates: start: 20021201, end: 20021201
  6. MYCOPHENOLATE MOFETIL [Suspect]
     Route: 048
     Dates: start: 20021202
  7. MYCOPHENOLATE MOFETIL [Suspect]
     Route: 048
     Dates: start: 20021228
  8. MYCOPHENOLATE MOFETIL [Suspect]
     Route: 048
     Dates: start: 20030106
  9. MYCOPHENOLATE MOFETIL [Suspect]
     Route: 048
     Dates: start: 20030304
  10. MYCOPHENOLATE MOFETIL [Suspect]
     Dosage: FORM: DRAG
     Route: 048
     Dates: start: 20030313
  11. MYCOPHENOLATE MOFETIL [Suspect]
     Route: 048
     Dates: start: 20050120
  12. TACROLIMUS [Suspect]
     Route: 048
     Dates: start: 20021128, end: 20021128
  13. TACROLIMUS [Suspect]
     Route: 048
     Dates: start: 20030122, end: 20030123
  14. TACROLIMUS [Suspect]
     Route: 048
     Dates: start: 20030324
  15. TACROLIMUS [Suspect]
     Route: 048
     Dates: start: 20030616
  16. TACROLIMUS [Suspect]
     Route: 048
     Dates: start: 20030826
  17. TACROLIMUS [Suspect]
     Route: 048
     Dates: start: 20040114, end: 20040115
  18. TACROLIMUS [Suspect]
     Route: 048
     Dates: start: 20040223
  19. TACROLIMUS [Suspect]
     Route: 048
     Dates: start: 20021129
  20. TACROLIMUS [Suspect]
     Route: 048
     Dates: start: 20030101
  21. TACROLIMUS [Suspect]
     Route: 048
     Dates: start: 20030110
  22. TACROLIMUS [Suspect]
     Route: 048
     Dates: start: 20030124
  23. TACROLIMUS [Suspect]
     Route: 048
     Dates: start: 20030211
  24. TACROLIMUS [Suspect]
     Route: 048
     Dates: start: 20040116
  25. TACROLIMUS [Suspect]
     Route: 048
     Dates: start: 20040226
  26. TACROLIMUS [Suspect]
     Route: 048
     Dates: start: 20050120
  27. TACROLIMUS [Suspect]
     Route: 048
     Dates: start: 20050218
  28. URBASON [Suspect]
     Route: 042
     Dates: start: 20021128, end: 20021129
  29. URBASON [Suspect]
     Route: 048
     Dates: start: 20021130
  30. URBASON [Suspect]
     Route: 048
     Dates: start: 20021202
  31. URBASON [Suspect]
     Route: 048
     Dates: start: 20030109
  32. URBASON [Suspect]
     Route: 048
     Dates: start: 20030218
  33. URBASON [Suspect]
     Route: 048
     Dates: start: 20040526
  34. ACTRAPHANE [Concomitant]
     Dosage: DRUG: ACTRAPHANE 30/70
     Route: 058
     Dates: start: 20020101
  35. ACTRAPHANE [Concomitant]
     Route: 058
     Dates: start: 20030127
  36. ACTRAPHANE [Concomitant]
     Route: 058
     Dates: start: 20030324
  37. ACTRAPHANE [Concomitant]
     Route: 058
     Dates: start: 20030402
  38. AMPHOTERICIN B [Concomitant]
     Route: 048
     Dates: start: 20021210, end: 20030115
  39. AMPICILLIN-NATRIUM [Concomitant]
     Route: 042
     Dates: start: 20021206, end: 20021211
  40. CIPROFLOXACIN [Concomitant]
     Route: 042
     Dates: start: 20021217, end: 20021218
  41. CIPROFLOXACIN [Concomitant]
     Route: 042
     Dates: start: 20021229
  42. CIPROFLOXACIN [Concomitant]
     Route: 042
     Dates: start: 20030101, end: 20030101
  43. CIPROFLOXACIN [Concomitant]
     Route: 048
     Dates: start: 20021227, end: 20021229
  44. CIPROFLOXACIN [Concomitant]
     Dosage: DOSING AMOUNT HAS BEEN CAPTURED IN MG AS 250 GRAM BEING A VERY HIGH DOSE SEEMS TO BE A TYPO ERROR.
     Route: 048
     Dates: start: 20030101, end: 20030101
  45. CIPROFLOXACIN [Concomitant]
     Route: 048
     Dates: start: 20030102, end: 20030103
  46. CIPROFLOXACIN [Concomitant]
     Route: 048
     Dates: start: 20050316, end: 20050316
  47. CIPROFLOXACIN [Concomitant]
     Route: 048
     Dates: start: 20050316
  48. COTRIM [Concomitant]
     Route: 048
     Dates: start: 20021128
  49. CYMEVEN [Concomitant]
     Route: 048
     Dates: start: 20021128
  50. METOLAZON [Concomitant]
     Route: 048
     Dates: start: 20021221
  51. METOLAZON [Concomitant]
     Route: 048
     Dates: start: 20021228, end: 20021231
  52. METOPROLOL SUCCINATE [Concomitant]
     Route: 048
     Dates: start: 20021128
  53. NORVASC [Concomitant]
     Route: 048
     Dates: start: 20020101
  54. NORVASC [Concomitant]
     Route: 048
     Dates: start: 20030324
  55. NORVASC [Concomitant]
     Route: 048
     Dates: start: 20030528
  56. NORVASC [Concomitant]
     Route: 048
     Dates: start: 20030616
  57. NORVASC [Concomitant]
     Route: 048
     Dates: start: 20030826, end: 20040818
  58. PANTOZOL [Concomitant]
     Dosage: FORM: DRAG
     Route: 048
     Dates: start: 20030110
  59. PIPRIL [Concomitant]
     Route: 048
     Dates: start: 20021128, end: 20021207
  60. STAPHYLEX [Concomitant]
     Route: 048
     Dates: start: 20021128, end: 20021207
  61. DIBLOCIN [Concomitant]
     Dosage: DRUG: DIBLOCIN PP
     Route: 048
     Dates: start: 20030402

REACTIONS (5)
  - BLOOD CREATININE INCREASED [None]
  - DEHYDRATION [None]
  - DIARRHOEA [None]
  - HYPERURICAEMIA [None]
  - URETERAL STENT INSERTION [None]
